FAERS Safety Report 5740027-0 (Version None)
Quarter: 2008Q2

REPORT INFORMATION
  Report Type: 
  Country: None (occurrence: None)
  Receive Date: 20080516
  Receipt Date: 20080507
  Transmission Date: 20081010
  Serious: Yes (Other)
  Sender: FDA-Public Use
  Company Number: DE-JNJFOC-20080501460

PATIENT
  Age: 46 Year
  Sex: Female
  Weight: 57 kg

DRUGS (4)
  1. REMICADE [Suspect]
     Indication: POLYARTHRITIS
     Route: 042
  2. REMICADE [Suspect]
     Indication: BEHCET'S SYNDROME
     Dosage: ^TREATMENT WITH (INFLIXIMAB) OVER 6 MONTHS
     Route: 042
  3. ETANERCEPT [Suspect]
     Indication: POLYARTHRITIS
     Route: 042
  4. ETANERCEPT [Suspect]
     Indication: BEHCET'S SYNDROME
     Dosage: TREATMENT WITH ETANERCEPT OVER 2 MONTHS
     Route: 042

REACTIONS (1)
  - DISSEMINATED TUBERCULOSIS [None]
